FAERS Safety Report 10922711 (Version 1)
Quarter: 2015Q1

REPORT INFORMATION
  Report Type: Spontaneous
  Country: GR (occurrence: GR)
  Receive Date: 20150317
  Receipt Date: 20150317
  Transmission Date: 20150721
  Serious: Yes (Other)
  Sender: FDA-Public Use
  Company Number: GR-GLAXOSMITHKLINE-GR2015GSK031474

PATIENT
  Age: 53 Year
  Sex: Male

DRUGS (1)
  1. REVOLADE [Suspect]
     Active Substance: ELTROMBOPAG
     Indication: IMMUNE THROMBOCYTOPENIC PURPURA
     Dosage: 50 MG, QD
     Dates: start: 201412, end: 20150225

REACTIONS (2)
  - Thrombosis [Recovered/Resolved]
  - Platelet count increased [Recovered/Resolved]

NARRATIVE: CASE EVENT DATE: 20150225
